FAERS Safety Report 4895891-4 (Version None)
Quarter: 2006Q1

REPORT INFORMATION
  Report Type: 
  Country: None (occurrence: None)
  Receive Date: 20060125
  Receipt Date: 20060112
  Transmission Date: 20060701
  Serious: Yes (Death)
  Sender: FDA-Public Use
  Company Number: 2006009161

PATIENT
  Age: 77 Year
  Sex: Male

DRUGS (22)
  1. SPIRONOLACTONE [Suspect]
     Indication: ILL-DEFINED DISORDER
     Dosage: 50 MG,
     Dates: end: 20040701
  2. ATORVASTATIN CALCIUM [Suspect]
     Indication: ILL-DEFINED DISORDER
     Dosage: 10 MG,
     Dates: end: 20040701
  3. DILTIAZEM [Suspect]
     Indication: ILL-DEFINED DISORDER
     Dosage: 60 MG (BID),
     Dates: end: 20040701
  4. METOCLOPRAMIDE [Suspect]
     Indication: ILL-DEFINED DISORDER
     Dosage: 10 MG (TID),
     Dates: end: 20040701
  5. DOTHIEPIN HYDROCHLORIDE [Suspect]
     Indication: ILL-DEFINED DISORDER
     Dosage: 75 MG (HS)
     Dates: end: 20040701
  6. SALBUTAMOL W/IPRATROPIUM (IPRATROPIUM, SALBUTAMOL) [Suspect]
     Indication: ILL-DEFINED DISORDER
     Dosage: INHALATION
     Route: 055
     Dates: end: 20040701
  7. SPIRIVA [Suspect]
     Indication: ILL-DEFINED DISORDER
     Dosage: 18 MCG, INHALATION
     Route: 055
     Dates: end: 20040701
  8. ASPIRIN [Suspect]
     Indication: ILL-DEFINED DISORDER
     Dosage: 75 MG,
     Dates: end: 20040701
  9. BECLOMETHASONE (BECLOMETHASONE) [Suspect]
     Indication: ILL-DEFINED DISORDER
     Dosage: 100 MCG (BID), INHALATION
     Route: 055
     Dates: end: 20040701
  10. FRUMIL (FUROSEMIDE, AMILORIDE HYDROCHLORIDE) [Suspect]
     Indication: ILL-DEFINED DISORDER
     Dates: end: 20040701
  11. DEXAMETHASONE [Suspect]
     Indication: ILL-DEFINED DISORDER
     Dosage: 2 MG,
     Dates: end: 20040701
  12. FUROSEMIDE [Suspect]
     Indication: ILL-DEFINED DISORDER
     Dosage: 80 MG,
     Dates: end: 20040701
  13. GAVISCON [Suspect]
     Indication: ILL-DEFINED DISORDER
     Dosage: 10 ML (QID),
     Dates: end: 20040701
  14. LACTULOSE [Suspect]
     Indication: ILL-DEFINED DISORDER
     Dosage: 3.35 G/5 ML (QD),
     Dates: end: 20040701
  15. LANSOPRAZOLE [Suspect]
     Indication: ILL-DEFINED DISORDER
     Dosage: 30 MG (OD),
     Dates: end: 20040701
  16. GLYCERYL TRINITRATE                 (GLYCERYL TRINITRATE) [Suspect]
     Indication: ILL-DEFINED DISORDER
     Dosage: 400 MG,
     Dates: end: 20040701
  17. LEVOMEPROMAZINE (LEVOMEPROMAZINE) [Suspect]
     Indication: ILL-DEFINED DISORDER
     Dosage: 25 MG (QID),
     Dates: end: 20040701
  18. OXYCODONE (OXYCODONE) [Suspect]
     Indication: ILL-DEFINED DISORDER
     Dosage: 20 MG (BID),
     Dates: end: 20040701
  19. OXYGEN (OXYGEN) [Suspect]
     Indication: ILL-DEFINED DISORDER
     Dosage: INHALATION
     Route: 055
     Dates: end: 20040701
  20. SYMBICORT (BUDESONIDE, FORMOTEROL FUMARATE) [Suspect]
     Indication: ILL-DEFINED DISORDER
     Dosage: 200 / 6 MCG (1 OR 2 PUFFS TWICE DAILY), INHALATION
     Route: 055
     Dates: end: 20040701
  21. TEMAZEPAM [Suspect]
     Indication: ILL-DEFINED DISORDER
     Dosage: 10 MG (ONCE OR TWICE NOCTE),
     Dates: end: 20040701
  22. SALBUTAMOL (SALBUTAMOL) [Suspect]
     Indication: ILL-DEFINED DISORDER
     Dosage: 100 MCG (TWICE DAILY IF NEEDED), INHALATION
     Route: 055
     Dates: end: 20040701

REACTIONS (1)
  - MESOTHELIOMA [None]
